FAERS Safety Report 12491735 (Version 1)
Quarter: 2016Q2

REPORT INFORMATION
  Report Type: Spontaneous
  Country: US (occurrence: None)
  Receive Date: 20160622
  Receipt Date: 20160622
  Transmission Date: 20160815
  Serious: Yes (Other)
  Sender: FDA-Public Use
  Company Number: None

PATIENT
  Age: 13 Year
  Sex: Female
  Weight: 54.43 kg

DRUGS (15)
  1. LAMOTRIGINE EXTENDED RELEASE [Suspect]
     Active Substance: LAMOTRIGINE
     Indication: MOOD SWINGS
     Dosage: 60 TABLET (S) IN THE MORNING TAKEN BY MOUTH
     Route: 048
     Dates: start: 20160609, end: 20160609
  2. FLONASE [Concomitant]
     Active Substance: FLUTICASONE PROPIONATE
  3. STOOL SOFTENER [Concomitant]
     Active Substance: DOCUSATE CALCIUM
  4. EVENING PRIMROSE OIL [Concomitant]
     Active Substance: EVENING PRIMROSE OIL
  5. IRON [Concomitant]
     Active Substance: IRON
  6. VITAMIN C [Concomitant]
     Active Substance: ASCORBIC ACID
  7. LAMICTAL [Concomitant]
     Active Substance: LAMOTRIGINE
  8. MIRENA [Concomitant]
     Active Substance: LEVONORGESTREL
  9. FISH OIL [Concomitant]
     Active Substance: FISH OIL
  10. MULTI-VIT [Concomitant]
     Active Substance: VITAMINS
  11. LAMOTRIGINE EXTENDED RELEASE [Suspect]
     Active Substance: LAMOTRIGINE
     Indication: FOETAL ALCOHOL SYNDROME
     Dosage: 60 TABLET (S) IN THE MORNING TAKEN BY MOUTH
     Route: 048
     Dates: start: 20160609, end: 20160609
  12. KAPVAY [Concomitant]
     Active Substance: CLONIDINE HYDROCHLORIDE
  13. CHRYSELLE [Concomitant]
  14. FE CLONIDINE [Concomitant]
  15. ZYRTEC [Concomitant]
     Active Substance: CETIRIZINE HYDROCHLORIDE

REACTIONS (3)
  - Abnormal behaviour [None]
  - Product substitution issue [None]
  - Agitation [None]

NARRATIVE: CASE EVENT DATE: 20160609
